FAERS Safety Report 5652982-8 (Version None)
Quarter: 2008Q1

REPORT INFORMATION
  Report Type: 
  Country: None (occurrence: None)
  Receive Date: 20080306
  Receipt Date: 20080227
  Transmission Date: 20080703
  Serious: Yes (Other)
  Sender: FDA-Public Use
  Company Number: PHBS2008NL02736

PATIENT
  Age: 31 Year
  Sex: Male

DRUGS (2)
  1. HYDROCHLOROTHIAZIDE [Suspect]
     Indication: HYPERTENSION
  2. CAPTOPRIL [Suspect]

REACTIONS (11)
  - ANGIOPLASTY [None]
  - BICUSPID AORTIC VALVE [None]
  - BLOOD PRESSURE INCREASED [None]
  - CARDIAC MURMUR [None]
  - COARCTATION OF THE AORTA [None]
  - COMPUTERISED TOMOGRAM ABNORMAL [None]
  - ELECTROCARDIOGRAM ABNORMAL [None]
  - FEMORAL PULSE DECREASED [None]
  - RENIN INCREASED [None]
  - SENSATION OF PRESSURE [None]
  - VASODILATATION [None]
